FAERS Safety Report 7639449-2 (Version None)
Quarter: 2011Q3

REPORT INFORMATION
  Report Type: 
  Country: None (occurrence: None)
  Receive Date: 20110727
  Receipt Date: 20110418
  Transmission Date: 20111222
  Serious: Yes (Hospitalization)
  Sender: FDA-Public Use
  Company Number: US-GLAXOSMITHKLINE-A0923673A

PATIENT
  Age: 76 Year
  Sex: Female

DRUGS (1)
  1. AVANDIA [Suspect]
     Indication: DIABETES MELLITUS
     Route: 048
     Dates: start: 20011103, end: 20041028

REACTIONS (9)
  - HEART RATE INCREASED [None]
  - CARDIAC FLUTTER [None]
  - ASTHENIA [None]
  - DIZZINESS [None]
  - SLEEP DISORDER [None]
  - OEDEMA PERIPHERAL [None]
  - DYSPNOEA [None]
  - LUNG DISORDER [None]
  - CARDIAC FAILURE CONGESTIVE [None]
